FAERS Safety Report 15860821 (Version 1)
Quarter: 2019Q1

REPORT INFORMATION
  Report Type: Spontaneous
  Country: FR (occurrence: FR)
  Receive Date: 20190124
  Receipt Date: 20190124
  Transmission Date: 20190417
  Serious: Yes (Other)
  Sender: FDA-Public Use
  Company Number: FR-ROCHE-2251344

PATIENT
  Age: 50 Year
  Sex: Female

DRUGS (1)
  1. MABTHERA [Suspect]
     Active Substance: RITUXIMAB
     Indication: NEUROMYELITIS OPTICA SPECTRUM DISORDER
     Dosage: ON 16/OCT/2014, MOST RECENT DOSE
     Route: 041
     Dates: start: 20120813

REACTIONS (2)
  - Dental cyst [Recovered/Resolved with Sequelae]
  - Tooth extraction [Recovered/Resolved with Sequelae]

NARRATIVE: CASE EVENT DATE: 20181215
